FAERS Safety Report 9454916 (Version 1)
Quarter: 2013Q3

REPORT INFORMATION
  Report Type: Spontaneous
  Country: US (occurrence: US)
  Receive Date: 20130813
  Receipt Date: 20130813
  Transmission Date: 20140515
  Serious: Yes (Other)
  Sender: FDA-Public Use
  Company Number: US-SUN PHARMACEUTICAL INDUSTRIES LTD-2013SUN03706

PATIENT
  Sex: 0

DRUGS (7)
  1. AZELASTINE HYDROCHLORIDE [Suspect]
     Indication: HYPERSENSITIVITY
     Dosage: ONE IN EACH NOSTRIL ONE IN THE MORNING AND ONE IN THE EVENING
     Route: 045
     Dates: start: 20130706
  2. AZELASTINE HYDROCHLORIDE [Suspect]
     Dosage: ONE IN EACH NOSTRIL ONE IN THE MORNING AND ONE IN THE EVENING
     Route: 045
     Dates: start: 20130728
  3. NASOCORT [Concomitant]
  4. EVISTA [Concomitant]
  5. VERAPAMIL [Concomitant]
     Indication: BLOOD PRESSURE ABNORMAL
  6. ACYCLOVIR [Concomitant]
     Dosage: ONCE A MONTH
  7. XANAX [Concomitant]
     Dosage: 0.5 MG, UNK

REACTIONS (8)
  - Hallucination [Not Recovered/Not Resolved]
  - Depression [Not Recovered/Not Resolved]
  - Abnormal dreams [Not Recovered/Not Resolved]
  - Abdominal pain [Not Recovered/Not Resolved]
  - Chest pain [Not Recovered/Not Resolved]
  - Palpitations [Not Recovered/Not Resolved]
  - Back pain [Not Recovered/Not Resolved]
  - Inappropriate schedule of drug administration [Unknown]
